FAERS Safety Report 18403428 (Version 1)
Quarter: 2020Q4

REPORT INFORMATION
  Report Type: Spontaneous
  Country: ES (occurrence: ES)
  Receive Date: 20201020
  Receipt Date: 20201020
  Transmission Date: 20210114
  Serious: Yes (Hospitalization)
  Sender: FDA-Public Use
  Company Number: ES-TEVA-2020-ES-1839057

PATIENT
  Age: 68 Year
  Sex: Female

DRUGS (4)
  1. CARBOPLATINO (2323A) [Suspect]
     Active Substance: CARBOPLATIN
     Indication: BREAST CANCER
     Dosage: 650 MG EVERY 21 DAYS
     Route: 042
     Dates: start: 20200828, end: 20200828
  2. PACLITAXEL (2698A) [Suspect]
     Active Substance: PACLITAXEL
     Indication: BREAST CANCER
     Dosage: 60 MG / M2 EVERY 15 DAYS
     Route: 042
     Dates: start: 20200828, end: 20200828
  3. PERTUZUMAB (8450A) [Suspect]
     Active Substance: PERTUZUMAB
     Indication: BREAST CANCER
     Dosage: 420 MG EVERY 21 DAYS
     Route: 042
     Dates: start: 20200828, end: 20200828
  4. TRASTUZUMAB (1168A) [Suspect]
     Active Substance: TRASTUZUMAB
     Indication: BREAST CANCER
     Dosage: 6 MG / KG EVERY 21 DAYS
     Route: 042
     Dates: start: 20200828, end: 20200828

REACTIONS (3)
  - Hypertensive crisis [Recovered/Resolved]
  - Acute pulmonary oedema [Recovered/Resolved]
  - Infusion related reaction [Recovered/Resolved]

NARRATIVE: CASE EVENT DATE: 20200828
